FAERS Safety Report 12254684 (Version 1)
Quarter: 2016Q2

REPORT INFORMATION
  Report Type: Spontaneous
  Country: US (occurrence: US)
  Receive Date: 20160411
  Receipt Date: 20160411
  Transmission Date: 20160815
  Serious: No
  Sender: FDA-Public Use
  Company Number: US-SA-2016SA004129

PATIENT
  Age: 82 Year
  Sex: Female

DRUGS (1)
  1. FEXOFENADINE HYDROCHLORIDE/PSEUDOEPHEDRINE HYDROCHLORIDE [Suspect]
     Active Substance: FEXOFENADINE HYDROCHLORIDE\PSEUDOEPHEDRINE HYDROCHLORIDE
     Route: 065

REACTIONS (9)
  - Hyperventilation [Unknown]
  - Hypertension [Unknown]
  - Tremor [Unknown]
  - Nausea [Unknown]
  - Malaise [Unknown]
  - Constipation [Unknown]
  - Headache [Unknown]
  - Stress [Unknown]
  - Dysgraphia [Unknown]
